FAERS Safety Report 8832055 (Version 1)
Quarter: 2012Q4

REPORT INFORMATION
  Report Type: 
  Country: IT (occurrence: IT)
  Receive Date: 20121009
  Receipt Date: 20121009
  Transmission Date: 20130627
  Serious: Yes (Hospitalization)
  Sender: FDA-Public Use
  Company Number: IT-ROCHE-1142977

PATIENT
  Age: 31 Year
  Sex: Male

DRUGS (4)
  1. DIAZEPAM [Suspect]
     Indication: ANXIETY
     Route: 048
     Dates: start: 20120701, end: 20120820
  2. ZYPREXA [Interacting]
     Indication: BIPOLAR DISORDER
     Route: 048
     Dates: start: 20120601, end: 20120820
  3. FLUCONAZOLE [Interacting]
     Indication: INSOMNIA
     Route: 048
     Dates: start: 20120701, end: 20120820
  4. XYREM [Interacting]
     Dosage: 17,5 oral solution
     Route: 065

REACTIONS (3)
  - Rhabdomyolysis [Recovering/Resolving]
  - Pyrexia [Recovering/Resolving]
  - Sopor [Recovering/Resolving]
